FAERS Safety Report 9535020 (Version 1)
Quarter: 2013Q3

REPORT INFORMATION
  Report Type: Spontaneous
  Country: GB (occurrence: GB)
  Receive Date: 20130918
  Receipt Date: 20130918
  Transmission Date: 20140515
  Serious: Yes (Other)
  Sender: FDA-Public Use
  Company Number: GB-PFIZER INC-2013264883

PATIENT
  Sex: 0

DRUGS (1)
  1. VENLAFAXINE HCL [Suspect]
     Dosage: UNK

REACTIONS (3)
  - Hepatic steatosis [Not Recovered/Not Resolved]
  - Liver function test abnormal [Unknown]
  - Condition aggravated [Unknown]
